FAERS Safety Report 24143230 (Version 1)
Quarter: 2024Q3

REPORT INFORMATION
  Report Type: Spontaneous
  Country: JP (occurrence: JP)
  Receive Date: 20240726
  Receipt Date: 20240726
  Transmission Date: 20241016
  Serious: Yes (Other)
  Sender: REGENERON
  Company Number: JP-REGENERON PHARMACEUTICALS, INC.-2024-101028

PATIENT
  Sex: Female

DRUGS (1)
  1. LIBTAYO [Suspect]
     Active Substance: CEMIPLIMAB-RWLC
     Indication: Cervix carcinoma
     Dosage: 350 MG, Q3W

REACTIONS (12)
  - Hyperthyroidism [Unknown]
  - Hypothyroidism [Unknown]
  - Renal impairment [Unknown]
  - Malaise [Unknown]
  - Decreased appetite [Unknown]
  - Chest pain [Unknown]
  - Eczema [Unknown]
  - Stomatitis [Unknown]
  - Hepatic function abnormal [Unknown]
  - Anaemia [Unknown]
  - Constipation [Unknown]
  - Off label use [Unknown]
